FAERS Safety Report 25990852 (Version 1)
Quarter: 2025Q4

REPORT INFORMATION
  Report Type: Spontaneous
  Country: US (occurrence: US)
  Receive Date: 20251103
  Receipt Date: 20251103
  Transmission Date: 20260119
  Serious: No
  Sender: EISAI
  Company Number: US-Eisai-EC-2025-198046

PATIENT

DRUGS (3)
  1. LENVATINIB [Suspect]
     Active Substance: LENVATINIB
     Indication: Clear cell renal cell carcinoma
     Dosage: DOSE AND FREQUENCY UNKNOWN
     Route: 048
  2. CABOMETYX [Concomitant]
     Active Substance: CABOZANTINIB S-MALATE
     Indication: Renal cell carcinoma stage IV
     Dosage: DOSE AND FREQUENCY UNKNOWN
  3. EVEROLIMUS [Concomitant]
     Active Substance: EVEROLIMUS
     Indication: Renal cell carcinoma stage IV
     Dosage: DOSE AND FREQUENCY UNKNOWN

REACTIONS (1)
  - Malignant neoplasm progression [Unknown]
